FAERS Safety Report 23941127 (Version 1)
Quarter: 2024Q2

REPORT INFORMATION
  Report Type: Spontaneous
  Country: FR (occurrence: FR)
  Receive Date: 20240605
  Receipt Date: 20240605
  Transmission Date: 20240717
  Serious: Yes (Hospitalization)
  Sender: FDA-Public Use
  Company Number: None

PATIENT
  Age: 61 Year
  Sex: Female

DRUGS (4)
  1. CLINDAMYCIN [Suspect]
     Active Substance: CLINDAMYCIN
     Indication: Febrile bone marrow aplasia
     Dosage: 1800 MG, DAILY (2 CAPSULES, 3X/DAY)
     Route: 048
     Dates: start: 20240205, end: 20240212
  2. ERIBULIN [Suspect]
     Active Substance: ERIBULIN
     Indication: Hormone receptor positive HER2 negative breast cancer
     Dosage: 1 DF, SINGLE
     Route: 042
     Dates: start: 20240129, end: 20240129
  3. CIPROFLOXACIN [Suspect]
     Active Substance: CIPROFLOXACIN
     Indication: Febrile bone marrow aplasia
     Dosage: 750 MG, 2X/DAY
     Route: 048
     Dates: start: 20240205, end: 20240212
  4. TARKA [Concomitant]
     Active Substance: TRANDOLAPRIL\VERAPAMIL HYDROCHLORIDE
     Dosage: UNK

REACTIONS (3)
  - Renal tubular necrosis [Recovering/Resolving]
  - Acute kidney injury [Recovering/Resolving]
  - Off label use [Unknown]

NARRATIVE: CASE EVENT DATE: 20240205
